FAERS Safety Report 8389459-5 (Version None)
Quarter: 2012Q2

REPORT INFORMATION
  Report Type: 
  Country: None (occurrence: None)
  Receive Date: 20120528
  Receipt Date: 20120515
  Transmission Date: 20120825
  Serious: Yes (Hospitalization, Other)
  Sender: FDA-Public Use
  Company Number: ES-ELI_LILLY_AND_COMPANY-ES201205005745

PATIENT
  Sex: Male

DRUGS (1)
  1. FORTEO [Suspect]

REACTIONS (2)
  - SPINAL COLUMN INJURY [None]
  - HIP FRACTURE [None]
